FAERS Safety Report 15622872 (Version 1)
Quarter: 2018Q4

REPORT INFORMATION
  Report Type: Spontaneous
  Country: US (occurrence: US)
  Receive Date: 20181115
  Receipt Date: 20181115
  Transmission Date: 20190205
  Serious: No
  Sender: FDA-Public Use
  Company Number: US-ASTRAZENECA-2017SE43611

PATIENT
  Age: 57 Year
  Sex: Female
  Weight: 61.2 kg

DRUGS (3)
  1. BEVESPI AEROSPHERE [Suspect]
     Active Substance: FORMOTEROL FUMARATE\GLYCOPYRROLATE
     Indication: ASTHMA
     Dosage: 9MCG/4.8MCG, TWO PUFFS, DAILY
     Route: 055
  2. ZYRTEC [Concomitant]
     Active Substance: CETIRIZINE HYDROCHLORIDE
     Indication: MULTIPLE ALLERGIES
     Dosage: DAILY
     Route: 048
  3. BEVESPI AEROSPHERE [Suspect]
     Active Substance: FORMOTEROL FUMARATE\GLYCOPYRROLATE
     Indication: ASTHMA
     Dosage: 9MCG/4.8MCG, TWO PUFFS, TWO TIMES A DAY
     Route: 055

REACTIONS (9)
  - Off label use [Unknown]
  - Nightmare [Unknown]
  - Crying [Unknown]
  - Asthenia [Unknown]
  - Chest discomfort [Unknown]
  - Product use issue [Unknown]
  - Product dose omission [Unknown]
  - Intentional product misuse [Unknown]
  - Dyspnoea [Unknown]
